FAERS Safety Report 9172215 (Version 1)
Quarter: 2013Q1

REPORT INFORMATION
  Report Type: Spontaneous
  Country: CO (occurrence: CO)
  Receive Date: 20130319
  Receipt Date: 20130319
  Transmission Date: 20140127
  Serious: Yes (Other)
  Sender: FDA-Public Use
  Company Number: CO-AMGEN-COLSP2013019118

PATIENT
  Age: 52 Year
  Sex: Male

DRUGS (4)
  1. ENBREL [Suspect]
     Indication: RHEUMATOID ARTHRITIS
     Dosage: 50 MG, WEEKLY
     Route: 058
     Dates: start: 201208, end: 201210
  2. ENBREL [Suspect]
     Dosage: 50 MG, WEEKLY
     Route: 058
     Dates: start: 201302, end: 20130310
  3. ATORVASTATIN [Concomitant]
     Dosage: 20 MG, UNK
     Route: 048
  4. ARAVA [Concomitant]
     Indication: RHEUMATOID ARTHRITIS
     Dosage: UNK
     Dates: start: 201208

REACTIONS (8)
  - Rheumatoid arthritis [Recovered/Resolved]
  - Pyrexia [Recovered/Resolved with Sequelae]
  - Bedridden [Recovered/Resolved]
  - Blood glucose increased [Recovered/Resolved]
  - Urticaria [Recovered/Resolved with Sequelae]
  - Rash generalised [Recovered/Resolved]
  - Aphonia [Not Recovered/Not Resolved]
  - Influenza [Not Recovered/Not Resolved]
